FAERS Safety Report 7418179-6 (Version None)
Quarter: 2011Q2

REPORT INFORMATION
  Report Type: 
  Country: None (occurrence: None)
  Receive Date: 20110415
  Receipt Date: 20110401
  Transmission Date: 20111010
  Serious: Yes (Death, Other)
  Sender: FDA-Public Use
  Company Number: US-CELGENEUS-163-21880-10101055

PATIENT
  Sex: Male

DRUGS (10)
  1. XANAX [Concomitant]
     Indication: ANXIETY
     Dosage: 1 MILLIGRAM
     Route: 048
  2. REVLIMID [Suspect]
     Dosage: 25 MILLIGRAM
     Route: 048
     Dates: start: 20100914, end: 20101005
  3. CELEXA [Concomitant]
     Dosage: 20 MILLIGRAM
     Route: 048
  4. REVLIMID [Suspect]
     Dosage: 25 MILLIGRAM
     Route: 048
     Dates: start: 20100801, end: 20100801
  5. SYNTHROID [Concomitant]
     Dosage: 125 MICROGRAM
     Route: 048
  6. RESTORIL [Concomitant]
     Indication: INSOMNIA
     Dosage: 15 MILLIGRAM
     Route: 048
  7. PROTONIX [Concomitant]
     Dosage: 40 MILLIGRAM
     Route: 048
  8. REVLIMID [Suspect]
     Indication: MULTIPLE MYELOMA
     Dosage: 5 MILLIGRAM
     Route: 048
     Dates: start: 20100728
  9. PHENERGAN HCL [Concomitant]
     Indication: NAUSEA
     Dosage: 25 MILLIGRAM
     Route: 048
  10. DEXAMETHASONE [Concomitant]
     Indication: MULTIPLE MYELOMA
     Route: 065
     Dates: start: 20100728

REACTIONS (2)
  - MULTIPLE MYELOMA [None]
  - THROMBOCYTOPENIA [None]
